FAERS Safety Report 8606149 (Version 3)
Quarter: 2014Q3

REPORT INFORMATION
  Report Type: Spontaneous
  Country: US (occurrence: US)
  Receive Date: 20120608
  Receipt Date: 20140913
  Transmission Date: 20150326
  Serious: No
  Sender: FDA-Public Use
  Company Number: US-ASTRAZENECA-2011SE30162

PATIENT
  Age: 58 Year
  Sex: Male
  Weight: 87.5 kg

DRUGS (6)
  1. SLOW NIACIN [Concomitant]
     Indication: BLOOD CHOLESTEROL ABNORMAL
     Dates: start: 2004
  2. THYROID MEDICINE [Concomitant]
     Active Substance: UNSPECIFIED INGREDIENT
  3. ATACAND [Suspect]
     Active Substance: CANDESARTAN CILEXETIL
     Indication: HYPERTENSION
     Route: 048
     Dates: end: 20140816
  4. ATACAND [Suspect]
     Active Substance: CANDESARTAN CILEXETIL
     Indication: HYPERTENSION
     Route: 048
  5. BLOOD PRESSURE [Concomitant]
  6. ATACAND [Suspect]
     Active Substance: CANDESARTAN CILEXETIL
     Indication: HYPERTENSION
     Route: 048
     Dates: start: 20140817

REACTIONS (9)
  - Intervertebral disc degeneration [Unknown]
  - Joint crepitation [Unknown]
  - Off label use [Recovered/Resolved]
  - Neck injury [Unknown]
  - Intervertebral disc protrusion [Unknown]
  - Impaired work ability [Unknown]
  - Drug dose omission [Not Recovered/Not Resolved]
  - Headache [Not Recovered/Not Resolved]
  - Intentional product misuse [Unknown]

NARRATIVE: CASE EVENT DATE: 20140817
